FAERS Safety Report 25950491 (Version 1)
Quarter: 2025Q4

REPORT INFORMATION
  Report Type: Spontaneous
  Country: EU (occurrence: EU)
  Receive Date: 20251023
  Receipt Date: 20251023
  Transmission Date: 20260117
  Serious: Yes (Other)
  Sender: TEVA
  Company Number: None

PATIENT
  Sex: Male
  Weight: 89.4 kg

DRUGS (60)
  1. PREGABALIN [Suspect]
     Active Substance: PREGABALIN
     Indication: Product used for unknown indication
     Route: 065
     Dates: start: 20250805, end: 20250807
  2. PREGABALIN [Suspect]
     Active Substance: PREGABALIN
     Indication: Product used for unknown indication
     Route: 065
     Dates: start: 20250522, end: 20250527
  3. PREGABALIN [Suspect]
     Active Substance: PREGABALIN
     Indication: Product used for unknown indication
     Route: 065
     Dates: start: 20250813, end: 20250813
  4. PREGABALIN [Suspect]
     Active Substance: PREGABALIN
     Indication: Product used for unknown indication
     Route: 065
     Dates: start: 20250513, end: 20250513
  5. PREGABALIN [Suspect]
     Active Substance: PREGABALIN
     Indication: Product used for unknown indication
     Route: 065
     Dates: start: 20250509, end: 20250509
  6. PREGABALIN [Suspect]
     Active Substance: PREGABALIN
     Indication: Product used for unknown indication
     Route: 065
     Dates: start: 20250508, end: 20250508
  7. PREGABALIN [Suspect]
     Active Substance: PREGABALIN
     Indication: Product used for unknown indication
     Route: 065
     Dates: start: 20250507, end: 20250507
  8. PREGABALIN [Suspect]
     Active Substance: PREGABALIN
     Indication: Product used for unknown indication
     Route: 065
     Dates: start: 20250528, end: 20250601
  9. PREGABALIN [Suspect]
     Active Substance: PREGABALIN
     Indication: Product used for unknown indication
     Route: 065
     Dates: start: 20250808, end: 20250812
  10. PREGABALIN [Suspect]
     Active Substance: PREGABALIN
     Indication: Product used for unknown indication
     Route: 065
     Dates: start: 20250520, end: 20250520
  11. PREGABALIN [Suspect]
     Active Substance: PREGABALIN
     Indication: Product used for unknown indication
     Route: 065
     Dates: start: 20250603, end: 20250604
  12. PREGABALIN [Suspect]
     Active Substance: PREGABALIN
     Indication: Product used for unknown indication
     Route: 065
     Dates: start: 20250829, end: 20250905
  13. PREGABALIN [Suspect]
     Active Substance: PREGABALIN
     Indication: Product used for unknown indication
     Route: 065
     Dates: start: 20250602, end: 20250602
  14. PREGABALIN [Suspect]
     Active Substance: PREGABALIN
     Indication: Product used for unknown indication
     Route: 065
     Dates: start: 20250514, end: 20250514
  15. PREGABALIN [Suspect]
     Active Substance: PREGABALIN
     Indication: Product used for unknown indication
     Route: 065
     Dates: start: 20250515, end: 20250519
  16. PREGABALIN [Suspect]
     Active Substance: PREGABALIN
     Indication: Product used for unknown indication
     Route: 065
     Dates: start: 20250605, end: 20250804
  17. PREGABALIN [Suspect]
     Active Substance: PREGABALIN
     Indication: Product used for unknown indication
     Route: 065
     Dates: start: 20250510, end: 20250512
  18. PREGABALIN [Suspect]
     Active Substance: PREGABALIN
     Indication: Product used for unknown indication
     Route: 065
     Dates: start: 20250521, end: 20250521
  19. MELATONIN [Suspect]
     Active Substance: MELATONIN
     Indication: Product used for unknown indication
     Route: 065
     Dates: start: 20250507, end: 20250729
  20. MELATONIN [Suspect]
     Active Substance: MELATONIN
     Indication: Product used for unknown indication
     Route: 065
     Dates: start: 20250730, end: 20250905
  21. LAVENDER OIL [Concomitant]
     Active Substance: LAVENDER OIL
     Indication: Product used for unknown indication
     Route: 065
     Dates: start: 20250507, end: 20250905
  22. MIRTAZAPINE [Suspect]
     Active Substance: MIRTAZAPINE
     Indication: Product used for unknown indication
     Route: 065
     Dates: start: 20250811, end: 20250905
  23. MIRTAZAPINE [Suspect]
     Active Substance: MIRTAZAPINE
     Indication: Product used for unknown indication
     Route: 065
     Dates: start: 20250507, end: 20250810
  24. Ketanest [Concomitant]
     Indication: Product used for unknown indication
     Route: 065
     Dates: start: 20250619, end: 20250619
  25. Ketanest [Concomitant]
     Indication: Product used for unknown indication
     Route: 065
     Dates: start: 20250728, end: 20250728
  26. Ketanest [Concomitant]
     Indication: Product used for unknown indication
     Route: 065
     Dates: start: 20250520, end: 20250520
  27. Ketanest [Concomitant]
     Indication: Product used for unknown indication
     Route: 065
     Dates: start: 20250707, end: 20250707
  28. Ketanest [Concomitant]
     Indication: Product used for unknown indication
     Route: 065
     Dates: start: 20250624, end: 20250624
  29. Ketanest [Concomitant]
     Indication: Product used for unknown indication
     Route: 065
     Dates: start: 20250605, end: 20250605
  30. Ketanest [Concomitant]
     Indication: Product used for unknown indication
     Route: 065
     Dates: start: 20250527, end: 20250527
  31. Ketanest [Concomitant]
     Indication: Product used for unknown indication
     Route: 065
     Dates: start: 20250522, end: 20250522
  32. Ketanest [Concomitant]
     Indication: Product used for unknown indication
     Route: 065
     Dates: start: 20250721, end: 20250721
  33. Ketanest [Concomitant]
     Indication: Product used for unknown indication
     Route: 065
     Dates: start: 20250626, end: 20250626
  34. Ketanest [Concomitant]
     Indication: Product used for unknown indication
     Route: 065
     Dates: start: 20250617, end: 20250617
  35. Ketanest [Concomitant]
     Indication: Product used for unknown indication
     Route: 065
     Dates: start: 20250603, end: 20250603
  36. Ketanest [Concomitant]
     Indication: Product used for unknown indication
     Route: 065
     Dates: start: 20250610, end: 20250610
  37. Ketanest [Concomitant]
     Indication: Product used for unknown indication
     Route: 065
     Dates: start: 20250714, end: 20250714
  38. Ketanest [Concomitant]
     Indication: Product used for unknown indication
     Route: 065
     Dates: start: 20250731, end: 20250731
  39. Ketanest [Concomitant]
     Indication: Product used for unknown indication
     Route: 065
     Dates: start: 20250515, end: 20250515
  40. Ketanest [Concomitant]
     Indication: Product used for unknown indication
     Route: 065
     Dates: start: 20250513, end: 20250513
  41. NALTREXONE [Concomitant]
     Active Substance: NALTREXONE
     Indication: Product used for unknown indication
     Route: 065
     Dates: start: 20250507, end: 20250613
  42. VENLAFAXINE [Suspect]
     Active Substance: VENLAFAXINE HYDROCHLORIDE
     Indication: Product used for unknown indication
     Route: 065
     Dates: start: 20250815, end: 20250905
  43. VENLAFAXINE [Suspect]
     Active Substance: VENLAFAXINE HYDROCHLORIDE
     Indication: Product used for unknown indication
     Route: 065
     Dates: start: 20250508, end: 20250514
  44. VENLAFAXINE [Suspect]
     Active Substance: VENLAFAXINE HYDROCHLORIDE
     Indication: Product used for unknown indication
     Route: 065
     Dates: start: 20250515, end: 20250729
  45. VENLAFAXINE [Suspect]
     Active Substance: VENLAFAXINE HYDROCHLORIDE
     Indication: Product used for unknown indication
     Route: 065
     Dates: start: 20250730, end: 20250814
  46. Daflon [Concomitant]
     Indication: Product used for unknown indication
     Route: 065
     Dates: start: 20250507, end: 20250905
  47. GINKGO [Concomitant]
     Active Substance: GINKGO
     Indication: Product used for unknown indication
     Route: 065
     Dates: start: 20250507, end: 20250618
  48. Temesta [Concomitant]
     Indication: Product used for unknown indication
     Route: 065
     Dates: start: 20250615, end: 20250618
  49. Temesta [Concomitant]
     Indication: Product used for unknown indication
     Route: 065
     Dates: start: 20250619, end: 20250715
  50. Temesta [Concomitant]
     Indication: Product used for unknown indication
     Route: 065
     Dates: start: 20250516, end: 20250609
  51. Temesta [Concomitant]
     Indication: Product used for unknown indication
     Route: 065
     Dates: start: 20250610, end: 20250611
  52. Temesta [Concomitant]
     Indication: Product used for unknown indication
     Route: 065
     Dates: start: 20250612, end: 20250614
  53. XYZAL [Suspect]
     Active Substance: LEVOCETIRIZINE DIHYDROCHLORIDE
     Indication: Product used for unknown indication
     Route: 065
     Dates: start: 20250507, end: 20250905
  54. IVABRADINE [Concomitant]
     Active Substance: IVABRADINE
     Indication: Product used for unknown indication
     Route: 065
     Dates: start: 20250520, end: 20250715
  55. IVABRADINE [Concomitant]
     Active Substance: IVABRADINE
     Indication: Product used for unknown indication
     Route: 065
     Dates: start: 20250507, end: 20250519
  56. KETOTIFEN [Suspect]
     Active Substance: KETOTIFEN
     Indication: Product used for unknown indication
     Route: 065
     Dates: start: 20250507, end: 20250715
  57. ASPIRIN [Concomitant]
     Active Substance: ASPIRIN
     Indication: Product used for unknown indication
     Route: 065
     Dates: start: 20250507, end: 20250905
  58. ARIPIPRAZOLE [Suspect]
     Active Substance: ARIPIPRAZOLE
     Indication: Product used for unknown indication
     Route: 065
     Dates: start: 20250507, end: 20250516
  59. ARIPIPRAZOLE [Suspect]
     Active Substance: ARIPIPRAZOLE
     Indication: Product used for unknown indication
     Route: 065
     Dates: start: 20250517, end: 20250905
  60. ENOXAPARIN SODIUM [Concomitant]
     Active Substance: ENOXAPARIN SODIUM
     Indication: Product used for unknown indication
     Route: 065
     Dates: start: 20250513, end: 20250609

REACTIONS (1)
  - Weight increased [Not Recovered/Not Resolved]

NARRATIVE: CASE EVENT DATE: 20250828
